FAERS Safety Report 6815453-9 (Version None)
Quarter: 2010Q2

REPORT INFORMATION
  Report Type: 
  Country: None (occurrence: None)
  Receive Date: 20100629
  Receipt Date: 20100622
  Transmission Date: 20101027
  Serious: Yes (Other)
  Sender: FDA-Public Use
  Company Number: 2010SP035166

PATIENT
  Age: 50 Year
  Sex: Female

DRUGS (1)
  1. REMERON [Suspect]
     Indication: DEPRESSION
     Dosage: 15 MG; QD;
     Dates: start: 20100601, end: 20100601

REACTIONS (1)
  - ANGLE CLOSURE GLAUCOMA [None]
